FAERS Safety Report 16722966 (Version 1)
Quarter: 2019Q3

REPORT INFORMATION
  Report Type: Spontaneous
  Country: US (occurrence: US)
  Receive Date: 20190821
  Receipt Date: 20190821
  Transmission Date: 20191005
  Serious: No
  Sender: FDA-Public Use
  Company Number: US-009507513-1908USA005822

PATIENT
  Sex: Female

DRUGS (1)
  1. ASMANEX HFA [Suspect]
     Active Substance: MOMETASONE FUROATE
     Dosage: TWO PUFFS / TWICE A DAY, STRENGTH: 120 DOSES

REACTIONS (3)
  - Poor quality device used [Unknown]
  - Product leakage [Unknown]
  - No adverse event [Unknown]

NARRATIVE: CASE EVENT DATE: 20190805
